FAERS Safety Report 5630001-7 (Version None)
Quarter: 2008Q1

REPORT INFORMATION
  Report Type: 
  Country: None (occurrence: None)
  Receive Date: 20080218
  Receipt Date: 20080211
  Transmission Date: 20080703
  Serious: Yes (Death, Life-Threatening, Hospitalization, Other)
  Sender: FDA-Public Use
  Company Number: PHEH2006US09631

PATIENT
  Age: 87 Year
  Sex: Female
  Weight: 68.027 kg

DRUGS (11)
  1. ZOMETA [Suspect]
     Indication: BREAST CANCER METASTATIC
     Dosage: UNK, UNK
     Dates: start: 20020801
  2. DURAGESIC-100 [Concomitant]
     Dosage: 50 MCG PATCH
  3. DURAGESIC-100 [Concomitant]
     Dosage: 100 MCG PATCH
  4. FEMARA [Concomitant]
     Indication: BREAST CANCER
  5. ALTACE [Concomitant]
     Dosage: 5 MG, UNK
  6. TAMOXIFEN [Concomitant]
     Indication: BREAST CANCER
     Dosage: 20 MG, QD
  7. DIGOXIN [Concomitant]
     Dosage: 125 MG, QD
  8. LASIX [Concomitant]
     Dosage: 40 MG, QD
  9. AROMASIN [Concomitant]
     Indication: BREAST CANCER
  10. ANTIDEPRESSANTS [Concomitant]
  11. RADIOTHERAPY [Concomitant]

REACTIONS (31)
  - ABDOMINAL PAIN [None]
  - ACCIDENTAL OVERDOSE [None]
  - ANXIETY [None]
  - APPENDICECTOMY [None]
  - BLADDER MASS [None]
  - BONE DISORDER [None]
  - BREAST CANCER METASTATIC [None]
  - CHEST PAIN [None]
  - DEBRIDEMENT [None]
  - DIARRHOEA [None]
  - DYSPNOEA [None]
  - ENDOTRACHEAL INTUBATION [None]
  - GASTROENTERITIS RADIATION [None]
  - HYSTERECTOMY [None]
  - IMPLANTABLE DEFIBRILLATOR INSERTION [None]
  - INJURY [None]
  - JAW DISORDER [None]
  - NAUSEA [None]
  - OOPHORECTOMY [None]
  - OSTEONECROSIS [None]
  - PAIN [None]
  - PULMONARY OEDEMA [None]
  - RESPIRATORY FAILURE [None]
  - SMALL INTESTINAL OBSTRUCTION [None]
  - TOOTH EXTRACTION [None]
  - TOOTH LOSS [None]
  - TRANSITIONAL CELL CARCINOMA [None]
  - ULTRASOUND PELVIS ABNORMAL [None]
  - UNRESPONSIVE TO STIMULI [None]
  - URINE CYTOLOGY ABNORMAL [None]
  - VOMITING [None]
